FAERS Safety Report 20324454 (Version 1)
Quarter: 2022Q1

REPORT INFORMATION
  Report Type: Spontaneous
  Country: None (occurrence: CN)
  Receive Date: 20220111
  Receipt Date: 20220111
  Transmission Date: 20220423
  Serious: Yes (Hospitalization, Other)
  Sender: FDA-Public Use
  Company Number: CN-Akron, Inc.-2123817

PATIENT
  Age: 18 Year
  Sex: Male
  Weight: 70 kg

DRUGS (2)
  1. VALPROIC ACID [Suspect]
     Active Substance: VALPROIC ACID
     Route: 048
  2. VENLAFAXINE [Suspect]
     Active Substance: VENLAFAXINE HYDROCHLORIDE

REACTIONS (3)
  - Serotonin syndrome [Recovered/Resolved]
  - Central nervous system infection [Recovered/Resolved]
  - Neuroleptic malignant syndrome [Recovered/Resolved]
